FAERS Safety Report 4878464-9 (Version None)
Quarter: 2005Q4

REPORT INFORMATION
  Report Type: 
  Country: None (occurrence: None)
  Receive Date: 20051209
  Receipt Date: 20050428
  Transmission Date: 20060501
  Serious: Yes (Other)
  Sender: FDA-Public Use
  Company Number: USA-2005-0020075

PATIENT
  Age: 24 Year
  Sex: Female

DRUGS (2)
  1. OXYCONTIN [Suspect]
     Indication: PAIN
  2. HEROIN (DIAMORPHINE) [Suspect]

REACTIONS (1)
  - POLYSUBSTANCE ABUSE [None]
